FAERS Safety Report 10268546 (Version 2)
Quarter: 2014Q3

REPORT INFORMATION
  Report Type: Spontaneous
  Country: FR (occurrence: FR)
  Receive Date: 20140630
  Receipt Date: 20140701
  Transmission Date: 20150326
  Serious: Yes (Hospitalization)
  Sender: FDA-Public Use
  Company Number: FR-TEVA-490899ISR

PATIENT
  Age: 26 Year
  Sex: Female

DRUGS (1)
  1. CIPROFLOXACINE RATIOPHARM 500 MG [Suspect]
     Active Substance: CIPROFLOXACIN
     Indication: PYELONEPHRITIS
     Dosage: 1 TABLET DAILY;
     Route: 048
     Dates: start: 20111116, end: 20111126

REACTIONS (5)
  - Drug ineffective [Recovered/Resolved]
  - Pyelonephritis [Recovered/Resolved]
  - Leukocyturia [Unknown]
  - Escherichia test positive [Unknown]
  - Back pain [Unknown]

NARRATIVE: CASE EVENT DATE: 20111130
